FAERS Safety Report 17654794 (Version 2)
Quarter: 2020Q2

REPORT INFORMATION
  Report Type: Spontaneous
  Country: NO (occurrence: NO)
  Receive Date: 20200410
  Receipt Date: 20200427
  Transmission Date: 20200713
  Serious: Yes (Other)
  Sender: FDA-Public Use
  Company Number: NO-OCTA-NGAM03620NO

PATIENT
  Age: 26 Year
  Sex: Male

DRUGS (1)
  1. PANZYGA [Suspect]
     Active Substance: HUMAN IMMUNOGLOBULIN G
     Indication: HYPOGAMMAGLOBULINAEMIA
     Dosage: GIVEN SPORADIC. TOTALLY THREE DOSAGES THIS YEAR;
     Route: 042
     Dates: start: 20190618, end: 20191015

REACTIONS (4)
  - Pyrexia [Unknown]
  - HIV test false positive [Unknown]
  - Hepatitis B core antibody positive [Unknown]
  - Hepatitis B surface antibody positive [Unknown]

NARRATIVE: CASE EVENT DATE: 20191021
